FAERS Safety Report 14563987 (Version 1)
Quarter: 2018Q1

REPORT INFORMATION
  Report Type: Spontaneous
  Country: US (occurrence: US)
  Receive Date: 20180222
  Receipt Date: 20180222
  Transmission Date: 20180509
  Serious: Yes (Death)
  Sender: FDA-Public Use
  Company Number: US-TEVA-2018-US-861936

PATIENT
  Age: 57 Year
  Sex: Female

DRUGS (5)
  1. IBRUTINIB [Suspect]
     Active Substance: IBRUTINIB
     Indication: CHRONIC LYMPHOCYTIC LEUKAEMIA
     Route: 065
  2. LENALIDOMIDE [Suspect]
     Active Substance: LENALIDOMIDE
     Indication: CHRONIC LYMPHOCYTIC LEUKAEMIA
     Dosage: ADMINISTERED BETWEEN 3-4 YEARS PRIOR TO THE ONSET OF PML
     Route: 065
  3. BENDAMUSTINE [Suspect]
     Active Substance: BENDAMUSTINE
     Indication: CHRONIC LYMPHOCYTIC LEUKAEMIA
     Dosage: ADMINISTERED BETWEEN 3-4 YEARS PRIOR TO THE ONSET OF PML
     Route: 065
  4. RITUXIMAB. [Suspect]
     Active Substance: RITUXIMAB
     Indication: CHRONIC LYMPHOCYTIC LEUKAEMIA
     Dosage: ADMINISTERED BETWEEN 5-8 YEARS PRIOR TO THE ONSET OF PML, AND BETWEEN 3-4 YEARS PRIOR TO THE ONSE...
     Route: 065
  5. FLUDARABINE [Suspect]
     Active Substance: FLUDARABINE PHOSPHATE
     Indication: CHRONIC LYMPHOCYTIC LEUKAEMIA
     Dosage: ADMINISTERED BETWEEN 5-8 YEARS PRIOR TO THE ONSET OF PML
     Route: 065

REACTIONS (1)
  - Progressive multifocal leukoencephalopathy [Fatal]
